FAERS Safety Report 4368364-5 (Version None)
Quarter: 2004Q2

REPORT INFORMATION
  Report Type: 
  Country: None (occurrence: None)
  Receive Date: 20040528
  Receipt Date: 20040524
  Transmission Date: 20050107
  Serious: Yes (Disabling)
  Sender: FDA-Public Use
  Company Number: 2004SE01828

PATIENT
  Age: 66 Year
  Sex: Female
  Weight: 48 kg

DRUGS (3)
  1. BLOPRESS [Suspect]
     Indication: HYPERTENSION
     Dosage: 8 MG QD PO
     Route: 048
     Dates: start: 20040321, end: 20040324
  2. TAKEPRON [Concomitant]
  3. SENNA LEAF [Concomitant]

REACTIONS (3)
  - BLOOD POTASSIUM INCREASED [None]
  - DIFFICULTY IN WALKING [None]
  - RHABDOMYOLYSIS [None]
